FAERS Safety Report 7231316-1 (Version None)
Quarter: 2011Q1

REPORT INFORMATION
  Report Type: 
  Country: None (occurrence: None)
  Receive Date: 20110118
  Receipt Date: 20110117
  Transmission Date: 20110831
  Serious: Yes (Hospitalization)
  Sender: FDA-Public Use
  Company Number: GXKR2011DE00598

PATIENT
  Age: 76 Year
  Sex: Male
  Weight: 120 kg

DRUGS (23)
  1. FALITHROM ^HEXAL^ [Concomitant]
     Route: 048
  2. BISOPROLOL [Concomitant]
     Route: 048
  3. BLOPRESS [Concomitant]
     Route: 048
  4. VOLTAREN [Concomitant]
     Route: 048
  5. OXIS TURBUHALER ^ASTRAZENECA^ [Concomitant]
     Route: 055
  6. TORSEMIDE [Concomitant]
     Route: 048
  7. ALLOPURINOL [Concomitant]
     Route: 048
  8. KONAKION [Concomitant]
     Route: 042
  9. SPIRIVA [Concomitant]
     Route: 055
  10. PERFALGAN [Concomitant]
     Route: 042
  11. CEFUROXIME [Suspect]
     Indication: INFECTION PROPHYLAXIS
     Dosage: 500 MG, UNK
     Route: 048
     Dates: start: 20091126, end: 20091202
  12. CEFUROXIME [Suspect]
     Dosage: 1.5 G, UNK
     Route: 042
     Dates: start: 20091125, end: 20091125
  13. OXYGESIC [Concomitant]
     Route: 048
  14. EMBOLEX [Concomitant]
     Route: 058
  15. VEROSPIRON [Concomitant]
     Route: 048
  16. OMEPRAZOLE [Interacting]
     Indication: PROPHYLAXIS AGAINST GASTROINTESTINAL ULCER
     Dosage: 40 MG, QD
     Route: 048
  17. BERLOSIN [Concomitant]
     Dosage: 500 MG, TID
     Route: 048
  18. SYMBICORT [Concomitant]
     Route: 055
  19. TAMSULOSIN [Concomitant]
     Route: 048
  20. CLEXANE [Concomitant]
     Route: 058
  21. SIMVASTATIN [Concomitant]
     Dosage: 40 MG, UNK
     Route: 048
  22. OXYGESIC [Concomitant]
     Route: 048
  23. ZOFRAN [Concomitant]
     Route: 048

REACTIONS (5)
  - PYREXIA [None]
  - LEUKOCYTOSIS [None]
  - DRUG INTERACTION [None]
  - CLOSTRIDIUM DIFFICILE COLITIS [None]
  - C-REACTIVE PROTEIN INCREASED [None]
